FAERS Safety Report 8338086-4 (Version None)
Quarter: 2012Q2

REPORT INFORMATION
  Report Type: 
  Country: None (occurrence: None)
  Receive Date: 20120504
  Receipt Date: 20120424
  Transmission Date: 20120825
  Serious: Yes (Hospitalization)
  Sender: FDA-Public Use
  Company Number: JP-JNJFOC-20120409211

PATIENT
  Age: 79 Year
  Sex: Male
  Weight: 51 kg

DRUGS (13)
  1. REMICADE [Suspect]
     Route: 042
     Dates: start: 20100318
  2. ARICEPT [Concomitant]
     Indication: DEMENTIA
     Route: 048
  3. REMICADE [Suspect]
     Route: 042
     Dates: start: 20100709
  4. REMICADE [Suspect]
     Route: 042
     Dates: start: 20100910
  5. FULMETA [Concomitant]
     Indication: PSORIASIS
  6. REMICADE [Suspect]
     Route: 042
     Dates: start: 20110401
  7. REMICADE [Suspect]
     Route: 042
     Dates: start: 20110930
  8. REMICADE [Suspect]
     Indication: PSORIASIS
     Route: 042
     Dates: start: 20100507
  9. REMICADE [Suspect]
     Route: 042
     Dates: start: 20110603
  10. REMICADE [Suspect]
     Route: 042
     Dates: start: 20110805
  11. REMICADE [Suspect]
     Route: 042
     Dates: start: 20100402
  12. REMICADE [Suspect]
     Route: 042
     Dates: start: 20110204
  13. OXAROL [Concomitant]
     Indication: PSORIASIS

REACTIONS (1)
  - SQUAMOUS CELL CARCINOMA [None]
